FAERS Safety Report 26074765 (Version 2)
Quarter: 2025Q4

REPORT INFORMATION
  Report Type: Spontaneous
  Country: US (occurrence: US)
  Receive Date: 20251121
  Receipt Date: 20251202
  Transmission Date: 20260118
  Serious: No
  Sender: MYLAN
  Company Number: US-MYLANLABS-2025M1096604

PATIENT
  Sex: Female

DRUGS (1)
  1. TYRVAYA [Suspect]
     Active Substance: VARENICLINE TARTRATE
     Indication: Product used for unknown indication
     Dosage: UNK

REACTIONS (5)
  - Lacrimation increased [Recovered/Resolved]
  - Pruritus [Unknown]
  - Oropharyngeal discomfort [Unknown]
  - Sneezing [Recovered/Resolved]
  - Device delivery system issue [Unknown]
